FAERS Safety Report 20322236 (Version 1)
Quarter: 2022Q1

REPORT INFORMATION
  Report Type: Spontaneous
  Country: IT (occurrence: IT)
  Receive Date: 20220111
  Receipt Date: 20220111
  Transmission Date: 20220423
  Serious: Yes (Life-Threatening, Hospitalization)
  Sender: FDA-Public Use
  Company Number: IT-EXELA PHARMA SCIENCES, LLC-2021EXL00044

PATIENT
  Age: 33 Day
  Sex: Female
  Weight: 5.6 kg

DRUGS (2)
  1. VERAPAMIL HYDROCHLORIDE [Suspect]
     Active Substance: VERAPAMIL HYDROCHLORIDE
     Indication: Supraventricular tachycardia
     Dosage: 0.1 MG/KG
     Route: 042
  2. PROPRANOLOL [Suspect]
     Active Substance: PROPRANOLOL HYDROCHLORIDE
     Indication: Supraventricular tachycardia
     Dosage: 0.5 MG/KG FOR A TOTAL OF 2.5 MG AS AN ATTACK DOSE
     Route: 065

REACTIONS (2)
  - Circulatory collapse [Recovered/Resolved]
  - Toxicity to various agents [Recovered/Resolved]
